FAERS Safety Report 16848361 (Version 1)
Quarter: 2019Q3

REPORT INFORMATION
  Report Type: Spontaneous
  Country: IT (occurrence: IT)
  Receive Date: 20190925
  Receipt Date: 20190925
  Transmission Date: 20191005
  Serious: Yes (Other)
  Sender: FDA-Public Use
  Company Number: IT-TEVA-2019-IT-1112474

PATIENT
  Age: 77 Year
  Sex: Male

DRUGS (6)
  1. LOPRESOR [Concomitant]
     Active Substance: METOPROLOL
  2. TRIATEC [Concomitant]
  3. FLUOROURACILE HIKMA [Suspect]
     Active Substance: FLUOROURACIL
     Indication: HEPATIC NEOPLASM
     Route: 065
  4. CALCIO LEVOFOLINATO TEVA [Suspect]
     Active Substance: LEVOLEUCOVORIN CALCIUM
     Route: 065
  5. TOTALIP [Concomitant]
     Active Substance: ATORVASTATIN
  6. COUMADIN [Concomitant]
     Active Substance: WARFARIN SODIUM

REACTIONS (3)
  - Rectal haemorrhage [Unknown]
  - Leukopenia [Unknown]
  - Anorectal discomfort [Unknown]
